FAERS Safety Report 10080149 (Version 1)
Quarter: 2014Q2

REPORT INFORMATION
  Report Type: Spontaneous
  Country: IT (occurrence: IT)
  Receive Date: 20140415
  Receipt Date: 20140415
  Transmission Date: 20141212
  Serious: Yes (Hospitalization)
  Sender: FDA-Public Use
  Company Number: IT-MYLANLABS-2014S1007835

PATIENT
  Age: 80 Year
  Sex: Female

DRUGS (5)
  1. LEVOFLOXACIN [Suspect]
     Indication: BRONCHITIS
     Dosage: 500 MG DAILY
     Route: 048
     Dates: start: 20140319, end: 20140325
  2. COUMADIN [Interacting]
     Indication: DEEP VEIN THROMBOSIS
     Dosage: 5 MG AS NECESSARY
     Route: 048
     Dates: start: 20140314, end: 20140318
  3. COUMADIN [Interacting]
     Indication: DEEP VEIN THROMBOSIS
     Dosage: 7.5 MG DAILY
     Route: 048
     Dates: start: 20140319, end: 20140325
  4. CLEXANE T [Interacting]
     Indication: DEEP VEIN THROMBOSIS
     Dosage: 16 LU DAILY
     Route: 058
     Dates: start: 20140319, end: 20140325
  5. ENALAPRIL MALEATE [Concomitant]
     Indication: HYPERTENSION
     Route: 048
     Dates: end: 20140325

REACTIONS (2)
  - Drug interaction [Recovering/Resolving]
  - Haematuria [Recovering/Resolving]
